FAERS Safety Report 18642168 (Version 1)
Quarter: 2020Q4

REPORT INFORMATION
  Report Type: Spontaneous
  Country: BG (occurrence: BG)
  Receive Date: 20201221
  Receipt Date: 20201221
  Transmission Date: 20210114
  Serious: Yes (Other)
  Sender: FDA-Public Use
  Company Number: BG-UNICHEM PHARMACEUTICALS (USA) INC-UCM202012-001481

PATIENT
  Age: 30 Year
  Sex: Male

DRUGS (5)
  1. RIVAROXABAN [Suspect]
     Active Substance: RIVAROXABAN
     Indication: PELVIC VENOUS THROMBOSIS
  2. RIVAROXABAN [Suspect]
     Active Substance: RIVAROXABAN
     Route: 048
  3. DIVALPROEX SODIUM. [Suspect]
     Active Substance: DIVALPROEX SODIUM
     Indication: POST-TRAUMATIC EPILEPSY
  4. DABIGATRAN [Suspect]
     Active Substance: DABIGATRAN
     Route: 048
  5. DABIGATRAN [Suspect]
     Active Substance: DABIGATRAN
     Indication: PELVIC VENOUS THROMBOSIS

REACTIONS (1)
  - Drug interaction [Unknown]
